FAERS Safety Report 16886537 (Version 2)
Quarter: 2019Q4

REPORT INFORMATION
  Report Type: Report from Study
  Country: US (occurrence: US)
  Receive Date: 20191004
  Receipt Date: 20191018
  Transmission Date: 20200122
  Serious: No
  Sender: FDA-Public Use
  Company Number: US-SA-2019SA267498

PATIENT
  Age: 70 Year
  Sex: Female

DRUGS (1)
  1. SARILUMAB [Suspect]
     Active Substance: SARILUMAB
     Dosage: 200 MG, QOW

REACTIONS (1)
  - Drug ineffective [Unknown]
